FAERS Safety Report 13035272 (Version 1)
Quarter: 2016Q4

REPORT INFORMATION
  Report Type: Spontaneous
  Country: US (occurrence: US)
  Receive Date: 20161215
  Receipt Date: 20161215
  Transmission Date: 20170207
  Serious: No
  Sender: FDA-Public Use
  Company Number: None

PATIENT
  Age: 79 Year
  Sex: Male

DRUGS (1)
  1. HUMIRA [Suspect]
     Active Substance: ADALIMUMAB
     Indication: CROHN^S DISEASE
     Route: 058
     Dates: start: 20160919

REACTIONS (18)
  - Sleep disorder [None]
  - Constipation [None]
  - Dry mouth [None]
  - Bone pain [None]
  - Dizziness [None]
  - Injection site pain [None]
  - Abdominal pain [None]
  - Fatigue [None]
  - Nausea [None]
  - Feeling cold [None]
  - Anger [None]
  - Dyspepsia [None]
  - Tremor [None]
  - Chills [None]
  - Memory impairment [None]
  - Injection site mass [None]
  - Headache [None]
  - Diarrhoea [None]

NARRATIVE: CASE EVENT DATE: 20161110
